FAERS Safety Report 7655983-3 (Version None)
Quarter: 2011Q3

REPORT INFORMATION
  Report Type: 
  Country: None (occurrence: None)
  Receive Date: 20110804
  Receipt Date: 20110726
  Transmission Date: 20111222
  Serious: Yes (Hospitalization)
  Sender: FDA-Public Use
  Company Number: IN-ROCHE-702908

PATIENT
  Sex: Male

DRUGS (4)
  1. BELATACEPT [Suspect]
     Dosage: FORM AS PER PROTOCOL
     Route: 042
     Dates: start: 20070518
  2. PREDNISOLONE [Suspect]
     Route: 065
     Dates: start: 20070523
  3. MYCOPHENOLATE MOFETIL [Suspect]
     Dosage: DOSE REDUCED
     Route: 065
  4. MYCOPHENOLATE MOFETIL [Suspect]
     Route: 065
     Dates: start: 20070517

REACTIONS (4)
  - GASTROENTERITIS [None]
  - GRAFT DYSFUNCTION [None]
  - RENAL TUBULAR NECROSIS [None]
  - CONVULSION [None]
